FAERS Safety Report 6415987-5 (Version None)
Quarter: 2009Q4

REPORT INFORMATION
  Report Type: 
  Country: None (occurrence: None)
  Receive Date: 20091027
  Receipt Date: 20091014
  Transmission Date: 20100525
  Serious: Yes (Hospitalization, Other)
  Sender: FDA-Public Use
  Company Number: NL-JNJFOC-20090106267

PATIENT
  Sex: Female
  Weight: 60 kg

DRUGS (4)
  1. NIZORAL [Suspect]
     Indication: DRUG USE FOR UNKNOWN INDICATION
     Dosage: 1 DF
     Route: 065
  2. LIPITOR [Interacting]
     Indication: HYPERCHOLESTEROLAEMIA
     Route: 065
  3. ACETYLSALICYLIC ACID [Concomitant]
     Route: 065
  4. COZAAR [Concomitant]
     Route: 065

REACTIONS (2)
  - DRUG INTERACTION [None]
  - RHABDOMYOLYSIS [None]
